FAERS Safety Report 12705071 (Version 3)
Quarter: 2016Q4

REPORT INFORMATION
  Report Type: Report from Study
  Country: US (occurrence: US)
  Receive Date: 20160831
  Receipt Date: 20161206
  Transmission Date: 20170207
  Serious: Yes (Hospitalization, Disabling, Other)
  Sender: FDA-Public Use
  Company Number: US-GILEAD-2016-0230481

PATIENT
  Age: 73 Year
  Sex: Male

DRUGS (2)
  1. RANOLAZINE [Suspect]
     Active Substance: RANOLAZINE
     Dosage: 1000 MG, UNK
     Route: 048
  2. RANOLAZINE [Suspect]
     Active Substance: RANOLAZINE
     Indication: ANGINA PECTORIS
     Dosage: 500 MG, UNK
     Route: 048

REACTIONS (6)
  - Cardiac operation [Unknown]
  - Intentional underdose [Unknown]
  - Wrong technique in product usage process [Unknown]
  - Pneumonia [Unknown]
  - Implantable defibrillator insertion [Unknown]
  - Pneumothorax [Unknown]

NARRATIVE: CASE EVENT DATE: 20160129
